FAERS Safety Report 9120909 (Version 1)
Quarter: 2013Q1

REPORT INFORMATION
  Report Type: Spontaneous
  Country: US (occurrence: US)
  Receive Date: 20130226
  Receipt Date: 20130226
  Transmission Date: 20140127
  Serious: Yes (Other)
  Sender: FDA-Public Use
  Company Number: US-ASTRAZENECA-2013SE11122

PATIENT
  Sex: Female

DRUGS (2)
  1. NEXIUM [Suspect]
     Indication: HIATUS HERNIA
     Route: 048
  2. OMEPRAZOLE [Suspect]
     Indication: HIATUS HERNIA
     Dosage: GENERIC
     Route: 048

REACTIONS (5)
  - Oesophageal food impaction [Unknown]
  - Choking [Unknown]
  - Chest pain [Unknown]
  - Intentional drug misuse [Unknown]
  - Drug ineffective for unapproved indication [Unknown]
